FAERS Safety Report 24883990 (Version 1)
Quarter: 2025Q1

REPORT INFORMATION
  Report Type: Spontaneous
  Country: ZA (occurrence: ZA)
  Receive Date: 20250124
  Receipt Date: 20250124
  Transmission Date: 20250409
  Serious: Yes (Other)
  Sender: TEVA
  Company Number: ZA-TEVA-VS-3288523

PATIENT
  Age: 34 Year
  Sex: Male

DRUGS (2)
  1. ROSUVASTATIN CALCIUM [Suspect]
     Active Substance: ROSUVASTATIN CALCIUM
     Indication: Product used for unknown indication
     Route: 048
     Dates: start: 2024
  2. ALCOHOL [Suspect]
     Active Substance: ALCOHOL
     Indication: Product used for unknown indication
     Route: 065

REACTIONS (9)
  - Mouth swelling [Unknown]
  - Swelling face [Unknown]
  - Nasal pruritus [Unknown]
  - Anaphylactic shock [Unknown]
  - Chest discomfort [Unknown]
  - Erythema [Unknown]
  - Adverse drug reaction [Recovered/Resolved]
  - Food interaction [Unknown]
  - Alcohol interaction [Unknown]

NARRATIVE: CASE EVENT DATE: 20230823
